FAERS Safety Report 7146138-X (Version None)
Quarter: 2010Q4

REPORT INFORMATION
  Report Type: 
  Country: None (occurrence: None)
  Receive Date: 20101124
  Receipt Date: 20101118
  Transmission Date: 20110411
  Serious: Yes (Other)
  Sender: FDA-Public Use
  Company Number: 20109060

PATIENT
  Sex: Male

DRUGS (1)
  1. LIORESAL [Suspect]
     Indication: MUSCLE SPASTICITY
     Dosage: 73 MCG, DAILY, INTRATHECAL
     Route: 037

REACTIONS (3)
  - DEVICE LEAKAGE [None]
  - HEADACHE [None]
  - IMPLANT SITE PAIN [None]
